FAERS Safety Report 10022190 (Version 1)
Quarter: 2014Q1

REPORT INFORMATION
  Report Type: Spontaneous
  Country: CN (occurrence: CN)
  Receive Date: 20140319
  Receipt Date: 20140319
  Transmission Date: 20141002
  Serious: Yes (Other)
  Sender: FDA-Public Use
  Company Number: CN-GLAXOSMITHKLINE-B0977426A

PATIENT
  Age: 26 Year
  Sex: 0

DRUGS (5)
  1. SERETIDE [Suspect]
     Indication: ASTHMA
     Dosage: 1PUFF TWICE PER DAY
     Route: 055
     Dates: start: 201101
  2. FLIXONASE [Suspect]
     Indication: RHINITIS
     Route: 045
     Dates: start: 2012
  3. CHINESE TRADITIONAL MEDICINE [Suspect]
     Indication: ASTHMA
     Route: 065
     Dates: start: 2012
  4. THEOPHYLLINE [Suspect]
     Indication: ASTHMA
     Route: 065
     Dates: start: 2012
  5. MONTELUKAST [Suspect]
     Indication: ASTHMA
     Route: 065
     Dates: start: 2012

REACTIONS (2)
  - Osteonecrosis [Not Recovered/Not Resolved]
  - Cerebral disorder [Unknown]
